FAERS Safety Report 13799532 (Version 1)
Quarter: 2017Q3

REPORT INFORMATION
  Report Type: Spontaneous
  Country: GB (occurrence: US)
  Receive Date: 20170727
  Receipt Date: 20170727
  Transmission Date: 20171127
  Serious: No
  Sender: FDA-Public Use
  Company Number: GB-JNJFOC-20170514001

PATIENT
  Sex: Male

DRUGS (4)
  1. AMLODIPINE [Concomitant]
     Active Substance: AMLODIPINE BESYLATE
     Indication: HYPERTENSION
  2. ROGAINE [Suspect]
     Active Substance: MINOXIDIL
     Indication: ALOPECIA
     Dosage: RESTARTED 2??WEEKS AGO
     Route: 065
     Dates: start: 201704, end: 201705
  3. EMAZOLE [Concomitant]
     Indication: GASTROOESOPHAGEAL REFLUX DISEASE
  4. ROGAINE [Suspect]
     Active Substance: MINOXIDIL
     Indication: ALOPECIA
     Dosage: TWO WEEKS BEFORE 23/MAR/2017
     Route: 065
     Dates: start: 201703, end: 2017

REACTIONS (5)
  - Pruritus [Unknown]
  - Paraesthesia [Unknown]
  - Dry skin [Unknown]
  - Skin irritation [Unknown]
  - Pain of skin [Unknown]
